FAERS Safety Report 7206122-4 (Version None)
Quarter: 2011Q1

REPORT INFORMATION
  Report Type: 
  Country: None (occurrence: None)
  Receive Date: 20110103
  Receipt Date: 20101229
  Transmission Date: 20110831
  Serious: Yes (Death, Hospitalization, Other)
  Sender: FDA-Public Use
  Company Number: US-ASTELLAS-2010US005299

PATIENT

DRUGS (6)
  1. THYMOGLOBULIN [Suspect]
     Dosage: 1.5 MG/KG, UNKNOWN/D
     Route: 065
  2. MYCOPHENOLATE MOFETIL [Suspect]
     Indication: RENAL AND PANCREAS TRANSPLANT
     Dosage: UNK
     Route: 065
  3. PREDNISONE [Suspect]
     Indication: RENAL AND PANCREAS TRANSPLANT
     Dosage: UNK
     Route: 065
  4. THYMOGLOBULIN [Suspect]
     Indication: RENAL AND PANCREAS TRANSPLANT
     Dosage: UNK
     Route: 065
  5. PROGRAF [Suspect]
     Indication: RENAL AND PANCREAS TRANSPLANT
     Dosage: UNK
     Route: 065
  6. METHYLPREDNISOLONE [Suspect]
     Indication: RENAL AND PANCREAS TRANSPLANT
     Dosage: UNK
     Route: 065

REACTIONS (4)
  - DEATH [None]
  - GRAFT VERSUS HOST DISEASE [None]
  - SEPSIS [None]
  - FUNGAEMIA [None]
